FAERS Safety Report 9848132 (Version 1)
Quarter: 2014Q1

REPORT INFORMATION
  Report Type: Spontaneous
  Country: US (occurrence: None)
  Receive Date: 20140117
  Receipt Date: 20140117
  Transmission Date: 20141002
  Serious: Yes (Death)
  Sender: FDA-Public Use
  Company Number: B0959152A

PATIENT
  Age: 35 Year
  Sex: Male

DRUGS (8)
  1. PAROXETINE HYDROCHLORIDE [Suspect]
     Route: 048
  2. MORPHINE [Suspect]
     Route: 048
  3. HYDROXYZINE (HYDROXYZINE) [Suspect]
  4. OMEPRAZOLE (OMEPRAZOLE) [Suspect]
     Route: 048
  5. GABAPENTIN (GABAPENTIN) [Suspect]
     Route: 048
  6. ALPRAZOLAM (ALPRAZOLAM) [Suspect]
     Route: 048
  7. TRAMADOL HYDROCHLORIDE (TRAMADOL HYDROCHLORIDE) [Suspect]
     Route: 048
  8. LORAZEPAM (LORAZEPAM) [Suspect]
     Route: 048

REACTIONS (1)
  - Cardio-respiratory arrest [None]
